FAERS Safety Report 13343482 (Version 2)
Quarter: 2017Q2

REPORT INFORMATION
  Report Type: Spontaneous
  Country: CA (occurrence: CA)
  Receive Date: 20170316
  Receipt Date: 20170515
  Transmission Date: 20170830
  Serious: Yes (Death, Hospitalization)
  Sender: FDA-Public Use
  Company Number: CA-SA-2017SA040651

PATIENT
  Age: 36 Year
  Sex: Female
  Weight: 58 kg

DRUGS (29)
  1. LOVENOX [Suspect]
     Active Substance: ENOXAPARIN SODIUM
     Indication: DEEP VEIN THROMBOSIS
     Dosage: DOSGAE FORM: SOLUTION SUBCUTANEOUS
     Route: 058
     Dates: start: 2015, end: 2015
  2. ALESSE 28 [Concomitant]
     Active Substance: ETHINYL ESTRADIOL\LEVONORGESTREL
     Route: 065
     Dates: start: 201206
  3. GRAVOL [Concomitant]
     Active Substance: DIMENHYDRINATE
     Route: 065
     Dates: start: 20130513
  4. EPOPROSTENOL SODIUM. [Suspect]
     Active Substance: EPOPROSTENOL SODIUM
     Indication: PULMONARY ARTERIAL HYPERTENSION
     Dosage: 1 EVERY 1 MINUTE(S)
     Route: 042
  5. OXYGEN. [Concomitant]
     Active Substance: OXYGEN
     Indication: PULMONARY ARTERIAL HYPERTENSION
     Dosage: DOSE AND FREQUENCY: 6 L/MIN, ROUTE: INTRA-NASAL
     Route: 045
     Dates: start: 2015, end: 2015
  6. PANTOLOC [Concomitant]
     Active Substance: PANTOPRAZOLE SODIUM
     Route: 065
     Dates: start: 20130817
  7. EPOPROSTENOL SODIUM. [Suspect]
     Active Substance: EPOPROSTENOL SODIUM
     Indication: PULMONARY ARTERIAL HYPERTENSION
     Dosage: 1 EVERY 1 MINUTE(S)
     Route: 042
  8. FLONASE [Concomitant]
     Active Substance: FLUTICASONE PROPIONATE
     Dosage: 2 SPRAYS PER NOSTRIL. PRN
     Route: 065
     Dates: start: 201111
  9. LASIX [Concomitant]
     Active Substance: FUROSEMIDE
     Indication: PULMONARY ARTERIAL HYPERTENSION
     Route: 042
  10. MAXERAN [Concomitant]
     Active Substance: METOCLOPRAMIDE HYDROCHLORIDE
     Route: 065
     Dates: start: 2015
  11. OXYGEN. [Concomitant]
     Active Substance: OXYGEN
     Indication: PULMONARY ARTERIAL HYPERTENSION
     Dosage: ROUTE: INTRA-NASAL??DOSAGE FORM : GAS FOR?INHALATION
  12. LASIX [Concomitant]
     Active Substance: FUROSEMIDE
     Indication: PULMONARY ARTERIAL HYPERTENSION
     Route: 042
  13. OXYGEN. [Concomitant]
     Active Substance: OXYGEN
     Indication: PULMONARY ARTERIAL HYPERTENSION
     Dosage: ROUTE: INTRA-NASAL
  14. ACETAMINOPHEN. [Concomitant]
     Active Substance: ACETAMINOPHEN
     Route: 065
     Dates: start: 20130523
  15. ATIVAN [Concomitant]
     Active Substance: LORAZEPAM
     Route: 065
     Dates: start: 2015, end: 2015
  16. FORMOTEROL [Concomitant]
     Active Substance: FORMOTEROL
     Indication: COUGH
     Dosage: ROUTE: INHALATION
     Dates: start: 2015
  17. POTASSIUM CHLORIDE. [Concomitant]
     Active Substance: POTASSIUM CHLORIDE
     Route: 048
     Dates: start: 2015
  18. LASIX [Concomitant]
     Active Substance: FUROSEMIDE
     Indication: PULMONARY ARTERIAL HYPERTENSION
     Route: 042
  19. MAGNESIUM SULFATE. [Concomitant]
     Active Substance: MAGNESIUM SULFATE
     Dosage: 5 G. OVER 5 HOURS
     Route: 042
     Dates: start: 2015, end: 2015
  20. EPOPROSTENOL SODIUM. [Suspect]
     Active Substance: EPOPROSTENOL SODIUM
     Indication: PULMONARY ARTERIAL HYPERTENSION
     Dosage: DOSE AND FREQUENCY: 2 NG/KG, PER MIN
     Route: 042
     Dates: start: 2015, end: 2015
  21. LASIX [Concomitant]
     Active Substance: FUROSEMIDE
     Indication: PULMONARY ARTERIAL HYPERTENSION
     Route: 042
  22. LASIX [Concomitant]
     Active Substance: FUROSEMIDE
     Indication: PULMONARY ARTERIAL HYPERTENSION
     Route: 048
     Dates: start: 2015, end: 2015
  23. LOPERAMIDE [Concomitant]
     Active Substance: LOPERAMIDE
     Route: 048
     Dates: start: 2015
  24. HOMATROPINE METHYLBROMIDE/HYDROCODONE BITARTRATE [Concomitant]
     Indication: PULMONARY HYPERTENSION
     Dosage: 5-10 MG,PIN
     Route: 065
  25. OPSUMIT [Suspect]
     Active Substance: MACITENTAN
     Indication: PULMONARY ARTERIAL HYPERTENSION
     Route: 048
     Dates: start: 2014, end: 2015
  26. ADCIRCA [Concomitant]
     Active Substance: TADALAFIL
     Indication: PULMONARY ARTERIAL HYPERTENSION
     Route: 065
     Dates: start: 2015
  27. LASIX [Concomitant]
     Active Substance: FUROSEMIDE
     Indication: PULMONARY ARTERIAL HYPERTENSION
     Route: 042
  28. MOMETASONE FUROATE. [Concomitant]
     Active Substance: MOMETASONE FUROATE
     Indication: COUGH
     Dosage: ROUTE:INHALATION?DOSE: 2, DAILY DOSE: 6
     Dates: start: 2015
  29. HOMATROPINE METHYLBROMIDE/HYDROCODONE BITARTRATE [Concomitant]
     Indication: COUGH
     Dosage: 5-10 MG,PIN
     Route: 065

REACTIONS (19)
  - Hypomagnesaemia [Unknown]
  - Liver function test increased [Unknown]
  - Transplant evaluation [Unknown]
  - Tachycardia [Unknown]
  - Deep vein thrombosis [Unknown]
  - Diarrhoea [Unknown]
  - Cardiac arrest [Fatal]
  - Acute kidney injury [Unknown]
  - Disease progression [Fatal]
  - Oxygen saturation decreased [Unknown]
  - Right ventricular failure [Unknown]
  - Venous pressure jugular increased [Unknown]
  - Pulmonary arterial hypertension [Fatal]
  - Pulmonary haemorrhage [Recovered/Resolved]
  - Cough [Unknown]
  - Oedema peripheral [Unknown]
  - Anxiety [Unknown]
  - Dyspnoea [Unknown]
  - Haemoptysis [Recovered/Resolved]

NARRATIVE: CASE EVENT DATE: 2015
